FAERS Safety Report 8405880-0 (Version None)
Quarter: 2012Q1

REPORT INFORMATION
  Report Type: 
  Country: None (occurrence: None)
  Receive Date: 20120323
  Receipt Date: 20110209
  Transmission Date: 20120608
  Serious: Yes (Disabling)
  Sender: FDA-Public Use
  Company Number: 163-21880-10122876

PATIENT
  Age: 69 Year
  Sex: Female

DRUGS (4)
  1. REVLIMID [Suspect]
     Indication: MULTIPLE MYELOMA
     Dosage: 15 MG, DAILY, PO, 25 MG, DAILY, PO, 10 MG, DAILY, PO, 5 MG, DAILY, PO
     Route: 048
     Dates: start: 20090801
  2. REVLIMID [Suspect]
     Indication: MULTIPLE MYELOMA
     Dosage: 15 MG, DAILY, PO, 25 MG, DAILY, PO, 10 MG, DAILY, PO, 5 MG, DAILY, PO
     Route: 048
     Dates: start: 20091101
  3. REVLIMID [Suspect]
     Indication: MULTIPLE MYELOMA
     Dosage: 15 MG, DAILY, PO, 25 MG, DAILY, PO, 10 MG, DAILY, PO, 5 MG, DAILY, PO
     Route: 048
     Dates: start: 20090101
  4. REVLIMID [Suspect]
     Indication: MULTIPLE MYELOMA
     Dosage: 15 MG, DAILY, PO, 25 MG, DAILY, PO, 10 MG, DAILY, PO, 5 MG, DAILY, PO
     Route: 048
     Dates: start: 20090701

REACTIONS (1)
  - DISEASE PROGRESSION [None]
